FAERS Safety Report 10592697 (Version 2)
Quarter: 2014Q4

REPORT INFORMATION
  Report Type: Report from Study
  Country: NL (occurrence: NL)
  Receive Date: 20141119
  Receipt Date: 20141214
  Transmission Date: 20150529
  Serious: Yes (Hospitalization)
  Sender: FDA-Public Use
  Company Number: NL-AMGEN-NLDSL2013094662

PATIENT
  Age: 66 Year
  Sex: Female

DRUGS (1)
  1. NEULASTA [Suspect]
     Active Substance: PEGFILGRASTIM
     Indication: PRODUCT USED FOR UNKNOWN INDICATION
     Dosage: 6 MG, Q3WK
     Route: 065
     Dates: start: 20130309, end: 20130719

REACTIONS (7)
  - Malaise [Unknown]
  - Vomiting [Unknown]
  - Hospitalisation [Unknown]
  - Fatigue [Unknown]
  - Paraesthesia [Unknown]
  - Nausea [Unknown]
  - Feeling abnormal [Unknown]
